FAERS Safety Report 15705524 (Version 1)
Quarter: 2018Q4

REPORT INFORMATION
  Report Type: Spontaneous
  Country: US (occurrence: US)
  Receive Date: 20181128
  Receipt Date: 20181128
  Transmission Date: 20190205
  Serious: Yes (Hospitalization)
  Sender: FDA-Public Use
  Company Number: None

PATIENT
  Age: 73 Year
  Sex: Female

DRUGS (7)
  1. ESBRIET [Suspect]
     Active Substance: PIRFENIDONE
     Indication: IDIOPATHIC INTERSTITIAL PNEUMONIA
     Route: 048
     Dates: start: 20150413
  2. FASLODEX [Concomitant]
     Active Substance: FULVESTRANT
  3. VITAMIN D [Concomitant]
     Active Substance: CHOLECALCIFEROL
  4. NEXIUM [Concomitant]
     Active Substance: ESOMEPRAZOLE MAGNESIUM
  5. XARELTO [Concomitant]
     Active Substance: RIVAROXABAN
  6. PREDNISCLONE SUS [Concomitant]
  7. CALCIUM [Suspect]
     Active Substance: CALCIUM

REACTIONS (1)
  - Product dose omission [None]
